FAERS Safety Report 12718037 (Version 1)
Quarter: 2016Q3

REPORT INFORMATION
  Report Type: Spontaneous
  Country: FR (occurrence: FR)
  Receive Date: 20160906
  Receipt Date: 20160906
  Transmission Date: 20161109
  Serious: Yes (Other)
  Sender: FDA-Public Use
  Company Number: FR-ABBVIE-16P-056-1719771-00

PATIENT
  Age: 70 Year
  Sex: Male

DRUGS (1)
  1. DEPAKINE [Suspect]
     Active Substance: VALPROATE SODIUM
     Indication: EPILEPSY
     Route: 048
     Dates: start: 1960

REACTIONS (5)
  - Brain cancer metastatic [Not Recovered/Not Resolved]
  - Liver disorder [Unknown]
  - Gastric ulcer [Unknown]
  - Sensory loss [Not Recovered/Not Resolved]
  - Anosmia [Not Recovered/Not Resolved]
